FAERS Safety Report 9270976 (Version 2)
Quarter: 2013Q2

REPORT INFORMATION
  Report Type: Spontaneous
  Country: CH (occurrence: CH)
  Receive Date: 20130506
  Receipt Date: 20130506
  Transmission Date: 20140414
  Serious: Yes (Hospitalization)
  Sender: FDA-Public Use
  Company Number: CH-BAYER-2013-052202

PATIENT
  Age: 63 Year
  Sex: Female

DRUGS (2)
  1. BETAFERON [Suspect]
     Dosage: 8 MIU, QOD
     Dates: start: 2012
  2. BRUFEN [Suspect]
     Indication: INFLUENZA
     Dosage: UNK
     Route: 048
     Dates: start: 2009, end: 2012

REACTIONS (2)
  - Benign gastrointestinal neoplasm [Recovered/Resolved]
  - Duodenal ulcer [Unknown]
